FAERS Safety Report 4883538-2 (Version None)
Quarter: 2006Q1

REPORT INFORMATION
  Report Type: 
  Country: None (occurrence: None)
  Receive Date: 20060118
  Receipt Date: 20060104
  Transmission Date: 20060701
  Serious: Yes (Death)
  Sender: FDA-Public Use
  Company Number: PHEH2006US00515

PATIENT
  Age: 58 Year
  Sex: Female

DRUGS (5)
  1. GLEEVEC [Suspect]
     Indication: THYMUS DISORDER
     Route: 048
     Dates: start: 20030601, end: 20051201
  2. ZOFRAN [Concomitant]
  3. COMPAZINE [Concomitant]
  4. PROTONIX [Concomitant]
  5. ANALGESICS [Concomitant]
     Indication: PAIN

REACTIONS (1)
  - DEATH [None]
